FAERS Safety Report 25948126 (Version 1)
Quarter: 2025Q4

REPORT INFORMATION
  Report Type: Spontaneous
  Country: US (occurrence: None)
  Receive Date: 20251022
  Receipt Date: 20251022
  Transmission Date: 20260117
  Serious: No
  Sender: BANNER
  Company Number: US-PTA-006331

PATIENT

DRUGS (1)
  1. NAPROXEN [Suspect]
     Active Substance: NAPROXEN
     Indication: Product used for unknown indication
     Dosage: BID
     Route: 048

REACTIONS (2)
  - Product prescribing issue [Unknown]
  - Extra dose administered [Unknown]
